FAERS Safety Report 4907058-1 (Version None)
Quarter: 2006Q1

REPORT INFORMATION
  Report Type: 
  Country: None (occurrence: None)
  Receive Date: 20060207
  Receipt Date: 20060123
  Transmission Date: 20060701
  Serious: Yes (Hospitalization)
  Sender: FDA-Public Use
  Company Number: USA0510111286

PATIENT
  Age: 77 Year
  Sex: Female

DRUGS (8)
  1. ZYPREXA [Suspect]
     Indication: BIPOLAR DISORDER
     Dosage: 15 MG, DAILY (1/D); 5 MG, DAILY (1.D)
     Dates: start: 20030101, end: 20050801
  2. ZYPREXA [Suspect]
     Indication: BIPOLAR DISORDER
     Dosage: 15 MG, DAILY (1/D); 5 MG, DAILY (1.D)
     Dates: start: 20050801, end: 20051015
  3. FLUOXETINE [Concomitant]
  4. LISINOPRIL [Concomitant]
  5. METHIMAZOLE (METHIMAZOLE) [Concomitant]
  6. DYAZIDE [Concomitant]
  7. FOSAMAX [Concomitant]
  8. OXYTROL [Concomitant]

REACTIONS (7)
  - AMNESIA [None]
  - BALANCE DISORDER [None]
  - DEPRESSION [None]
  - GAIT DISTURBANCE [None]
  - READING DISORDER [None]
  - STENT PLACEMENT [None]
  - TARDIVE DYSKINESIA [None]
